FAERS Safety Report 4514753-5 (Version None)
Quarter: 2004Q4

REPORT INFORMATION
  Report Type: 
  Country: None (occurrence: None)
  Receive Date: 20041201
  Receipt Date: 20041119
  Transmission Date: 20050328
  Serious: Yes (Other)
  Sender: FDA-Public Use
  Company Number: US-JNJFOC-20041105415

PATIENT
  Sex: Female
  Weight: 77.11 kg

DRUGS (18)
  1. REMICADE [Suspect]
     Route: 042
  2. REMICADE [Suspect]
     Route: 042
  3. REMICADE [Suspect]
     Indication: RHEUMATOID ARTHRITIS
     Route: 042
  4. TEMAZEPAM [Concomitant]
     Dosage: AT BEDTIME
  5. ARAVA [Concomitant]
  6. MULTIVITAMIN [Concomitant]
  7. CELEXA [Concomitant]
  8. DEPO-PROVERA [Concomitant]
  9. DETROL LA [Concomitant]
  10. EVOXAC [Concomitant]
  11. FAMVIR [Concomitant]
  12. FLEXORIL [Concomitant]
  13. MIRALAX [Concomitant]
     Dosage: 1 TBSP
  14. NASONEX [Concomitant]
  15. NEURONTIN [Concomitant]
  16. NEXIUM [Concomitant]
  17. ZYRTEC [Concomitant]
  18. DURAGESIC [Concomitant]

REACTIONS (6)
  - BEDRIDDEN [None]
  - HYPOTHYROIDISM [None]
  - IMMUNODEFICIENCY COMMON VARIABLE [None]
  - INFECTION [None]
  - NASOPHARYNGITIS [None]
  - WEIGHT INCREASED [None]
